FAERS Safety Report 6099817-X (Version None)
Quarter: 2009Q1

REPORT INFORMATION
  Report Type: 
  Country: None (occurrence: None)
  Receive Date: 20090303
  Receipt Date: 20090220
  Transmission Date: 20090719
  Serious: Yes (Hospitalization, Other)
  Sender: FDA-Public Use
  Company Number: PHHY2008JP32830

PATIENT
  Sex: Male
  Weight: 66 kg

DRUGS (8)
  1. ZOMETA [Suspect]
     Indication: METASTASES TO BONE
     Dosage: 4 MG, UNK
     Route: 042
     Dates: start: 20081105, end: 20081201
  2. SUMIFERON [Suspect]
     Indication: RENAL CANCER
     Dosage: 3000000 IU, UNK
     Route: 058
     Dates: start: 20081126, end: 20081203
  3. FENTANYL [Concomitant]
  4. HYPEN [Concomitant]
     Indication: PAIN
     Dosage: 400 MG
     Route: 048
     Dates: start: 20081021, end: 20081126
  5. FENTANYL [Concomitant]
     Indication: PAIN
     Dosage: 2.1 MG, TD
     Dates: start: 20081202
  6. FENTANYL [Concomitant]
     Dosage: 4.2 MG TD
     Dates: start: 20081202
  7. FENTANYL [Concomitant]
     Dosage: 8.4 MG, TD
     Dates: start: 20081202
  8. FENTANYL [Concomitant]
     Dosage: 12.6 MG , TD

REACTIONS (9)
  - BACK PAIN [None]
  - BLADDER CATHETERISATION [None]
  - DEPRESSED LEVEL OF CONSCIOUSNESS [None]
  - HYPOCALCAEMIA [None]
  - HYPONATRAEMIA [None]
  - MONOPLEGIA [None]
  - PERFORMANCE STATUS DECREASED [None]
  - URINARY RETENTION [None]
  - VOMITING [None]
